FAERS Safety Report 5471495-X (Version None)
Quarter: 2007Q3

REPORT INFORMATION
  Report Type: 
  Country: None (occurrence: None)
  Receive Date: 20070928
  Receipt Date: 20061115
  Transmission Date: 20080115
  Serious: No
  Sender: FDA-Public Use
  Company Number: US-BRISTOL-MYERS SQUIBB COMPANY-13579370

PATIENT
  Age: 49 Year
  Sex: Male

DRUGS (5)
  1. DEFINITY [Suspect]
     Indication: ECHOCARDIOGRAM
     Route: 042
     Dates: start: 20061110, end: 20061110
  2. GLYBURIDE [Concomitant]
  3. LEVAQUIN [Concomitant]
  4. LASIX [Concomitant]
  5. MAGNESIUM SULFATE [Concomitant]

REACTIONS (2)
  - BACK PAIN [None]
  - HEADACHE [None]
